FAERS Safety Report 16897370 (Version 5)
Quarter: 2019Q4

REPORT INFORMATION
  Report Type: Spontaneous
  Country: FI (occurrence: FI)
  Receive Date: 20191009
  Receipt Date: 20191031
  Transmission Date: 20200122
  Serious: Yes (Other)
  Sender: FDA-Public Use
  Company Number: FI-JNJFOC-20191005577

PATIENT
  Age: 45 Year
  Sex: Female

DRUGS (2)
  1. CETIRIZINE HYDROCHLORIDE/PSEUDOEPHEDRINE HYDROCHLORIDE [Suspect]
     Active Substance: CETIRIZINE HYDROCHLORIDE\PSEUDOEPHEDRINE HYDROCHLORIDE
     Indication: SINUSITIS
     Dosage: OFF LABEL USE FOR INDICATION
     Route: 065
     Dates: start: 20190923, end: 20190924
  2. DUACT [Concomitant]
     Active Substance: ACRIVASTINE\PSEUDOEPHEDRINE HYDROCHLORIDE
     Indication: PRODUCT USED FOR UNKNOWN INDICATION
     Route: 065

REACTIONS (4)
  - Heart rate increased [Recovered/Resolved]
  - Off label use [Unknown]
  - Cardiac flutter [Recovered/Resolved]
  - Cold sweat [Recovered/Resolved]

NARRATIVE: CASE EVENT DATE: 201909
